FAERS Safety Report 5689432-1 (Version None)
Quarter: 2008Q1

REPORT INFORMATION
  Report Type: 
  Country: None (occurrence: None)
  Receive Date: 20080328
  Receipt Date: 20080317
  Transmission Date: 20080703
  Serious: Yes (Other)
  Sender: FDA-Public Use
  Company Number: 2008SP001033

PATIENT
  Sex: Female

DRUGS (4)
  1. MIRALAX [Suspect]
     Indication: COLONOSCOPY
     Dosage: PO
     Route: 048
     Dates: start: 20080108
  2. BENICAR [Concomitant]
  3. CALCIUM [Concomitant]
  4. VITAMIN E [Concomitant]

REACTIONS (1)
  - DRUG HYPERSENSITIVITY [None]
